FAERS Safety Report 8145690-5 (Version None)
Quarter: 2012Q1

REPORT INFORMATION
  Report Type: 
  Country: None (occurrence: None)
  Receive Date: 20120217
  Receipt Date: 20111130
  Transmission Date: 20120608
  Serious: No
  Sender: FDA-Public Use
  Company Number: US-ALLERGAN-1115621US

PATIENT
  Age: 60 Year
  Sex: Female

DRUGS (1)
  1. TAZORAC [Suspect]
     Indication: SKIN WRINKLING
     Dosage: UNK
     Route: 061
     Dates: start: 20111001, end: 20111001

REACTIONS (2)
  - DIZZINESS [None]
  - DYSPNOEA [None]
